FAERS Safety Report 9924909 (Version 2)
Quarter: 2014Q1

REPORT INFORMATION
  Report Type: Report from Study
  Country: US (occurrence: US)
  Receive Date: 20140226
  Receipt Date: 20140312
  Transmission Date: 20141002
  Serious: Yes (Hospitalization)
  Sender: FDA-Public Use
  Company Number: US-BRISTOL-MYERS SQUIBB COMPANY-20219994

PATIENT
  Age: 72 Year
  Sex: Male
  Weight: 93.9 kg

DRUGS (11)
  1. BELATACEPT [Suspect]
     Dosage: 1037.5 MG 5JAN14?5 MG/KG 525MG?20AUG13 TO12SEP13
     Route: 042
     Dates: start: 20130428
  2. AMBIEN [Concomitant]
     Route: 048
  3. CARDURA [Concomitant]
     Route: 048
  4. FERROUS SULFATE [Concomitant]
     Route: 048
  5. PRILOSEC [Concomitant]
     Route: 048
  6. TYLENOL [Concomitant]
     Route: 048
  7. PENTAM [Concomitant]
     Route: 048
  8. VITAMIN D [Concomitant]
     Dosage: 1 DF=2000 UNITS
     Route: 048
  9. BUPROPION HCL [Concomitant]
     Route: 048
  10. ASPIRIN [Concomitant]
     Route: 047
  11. CYANOCOBALAMIN [Concomitant]
     Route: 048

REACTIONS (4)
  - Aortic aneurysm [Unknown]
  - Blood creatinine increased [Unknown]
  - Proteinuria [Unknown]
  - Kidney transplant rejection [Unknown]
